FAERS Safety Report 5143071-X (Version None)
Quarter: 2006Q4

REPORT INFORMATION
  Report Type: 
  Country: None (occurrence: None)
  Receive Date: 20061101
  Receipt Date: 20061101
  Transmission Date: 20070319
  Serious: Yes (Hospitalization)
  Sender: FDA-Public Use
  Company Number: None

PATIENT
  Sex: Female
  Weight: 54.9 kg

DRUGS (4)
  1. FLUDARABINE [Suspect]
     Indication: HAEMATOPOIETIC STEM CELL MOBILISATION
     Dosage: 48 MG DAILY IV DRIP
     Route: 041
     Dates: start: 20060922, end: 20060926
  2. FLUDARABINE [Suspect]
     Indication: STEM CELL TRANSPLANT
     Dosage: 48 MG DAILY IV DRIP
     Route: 041
     Dates: start: 20060922, end: 20060926
  3. CAMPATH [Suspect]
     Dosage: 20 MG DAILY IV DRIP
     Route: 041
     Dates: start: 20060922, end: 20060926
  4. MELPHALAN [Suspect]
     Dosage: 224 MG DAILY IV DRIP
     Route: 041
     Dates: start: 20060927, end: 20060927

REACTIONS (7)
  - ASTHENIA [None]
  - BLOOD TEST ABNORMAL [None]
  - FATIGUE [None]
  - HAEMATOCRIT DECREASED [None]
  - HAEMOGLOBIN DECREASED [None]
  - PLATELET COUNT DECREASED [None]
  - WHITE BLOOD CELL COUNT DECREASED [None]
